APPROVED DRUG PRODUCT: VANCOCIN HYDROCHLORIDE
Active Ingredient: VANCOMYCIN HYDROCHLORIDE
Strength: EQ 500MG BASE/6ML
Dosage Form/Route: FOR SOLUTION;ORAL
Application: A061667 | Product #001
Applicant: ANI PHARMACEUTICALS INC
Approved: Approved Prior to Jan 1, 1982 | RLD: No | RS: No | Type: DISCN